FAERS Safety Report 13793443 (Version 2)
Quarter: 2020Q3

REPORT INFORMATION
  Report Type: Report from Study
  Country: TW (occurrence: TW)
  Receive Date: 20170726
  Receipt Date: 20170803
  Transmission Date: 20201104
  Serious: Yes (Hospitalization)
  Sender: FDA-Public Use
  Company Number: TW-ASTRAZENECA-2016SF32406

PATIENT
  Age: 50 Year
  Sex: Male
  Weight: 55 kg

DRUGS (6)
  1. MEDI4736 [Suspect]
     Active Substance: DURVALUMAB
     Indication: OESOPHAGEAL CARCINOMA
     Dosage: 1066MG/BODY EVERY 4 WEEK (Q4W)
     Route: 042
     Dates: start: 20161027
  2. LACTULOSE. [Concomitant]
     Active Substance: LACTULOSE
     Indication: CONSTIPATION
     Route: 048
     Dates: start: 20161101
  3. ESOMEPRAZOLE. [Concomitant]
     Active Substance: ESOMEPRAZOLE MAGNESIUM
     Indication: TUMOUR HAEMORRHAGE
     Route: 048
     Dates: start: 20161123
  4. TREMELIMUMAB. [Suspect]
     Active Substance: TREMELIMUMAB
     Indication: OESOPHAGEAL CARCINOMA
     Dosage: 53.3MG/BODY EVERY 4 WEEK (Q4W)
     Route: 042
     Dates: start: 20161027
  5. TRANEXAMIC ACID. [Concomitant]
     Active Substance: TRANEXAMIC ACID
     Indication: TUMOUR HAEMORRHAGE
     Route: 048
     Dates: start: 20161122
  6. CODEINE [Concomitant]
     Active Substance: CODEINE
     Indication: TUMOUR HAEMORRHAGE
     Route: 048
     Dates: start: 20161201

REACTIONS (1)
  - Pericardial effusion [Recovered/Resolved]

NARRATIVE: CASE EVENT DATE: 20161213
